APPROVED DRUG PRODUCT: PENCICLOVIR
Active Ingredient: PENCICLOVIR
Strength: 1%
Dosage Form/Route: CREAM;TOPICAL
Application: A214100 | Product #001 | TE Code: AB
Applicant: AMNEAL PHARMACEUTICALS LLC
Approved: Aug 22, 2025 | RLD: No | RS: No | Type: RX